FAERS Safety Report 12818158 (Version 4)
Quarter: 2016Q4

REPORT INFORMATION
  Report Type: Report from Study
  Country: HU (occurrence: HU)
  Receive Date: 20161005
  Receipt Date: 20161102
  Transmission Date: 20170207
  Serious: Yes (Hospitalization, Other)
  Sender: FDA-Public Use
  Company Number: HU-GILEAD-2016-0236091

PATIENT
  Age: 49 Year
  Sex: Female
  Weight: 60.6 kg

DRUGS (7)
  1. IDELALISIB [Suspect]
     Active Substance: IDELALISIB
     Indication: CHRONIC LYMPHOCYTIC LEUKAEMIA
     Dosage: 100 MG, BID
     Route: 048
     Dates: start: 20160814, end: 20160922
  2. RITUXIMAB [Suspect]
     Active Substance: RITUXIMAB
     Indication: CHRONIC LYMPHOCYTIC LEUKAEMIA
     Dosage: 656 MG, CYCLICAL
     Route: 042
     Dates: start: 20140227, end: 20150722
  3. CONCOR [Concomitant]
     Active Substance: BISOPROLOL FUMARATE
     Indication: HYPERTENSION
     Dosage: 2.5 MG, QD
     Dates: start: 201512
  4. QUAMATEL [Concomitant]
     Active Substance: FAMOTIDINE
     Dosage: 1X40 MG, UNK
  5. KALDYUM [Concomitant]
     Active Substance: POTASSIUM CHLORIDE
  6. BENDAMUSTINE [Suspect]
     Active Substance: BENDAMUSTINE
     Indication: CHRONIC LYMPHOCYTIC LEUKAEMIA
     Dosage: 123 MG, CYCLICAL
     Route: 042
     Dates: start: 20140227, end: 20150722
  7. SUMETROLIM [Concomitant]
     Indication: ANTIFUNGAL PROPHYLAXIS
     Dosage: MON-WED-FRI 2 TABLETS, BID
     Dates: start: 201608

REACTIONS (1)
  - Pancreatitis [Recovered/Resolved]

NARRATIVE: CASE EVENT DATE: 20160922
